FAERS Safety Report 16862136 (Version 1)
Quarter: 2019Q3

REPORT INFORMATION
  Report Type: Spontaneous
  Country: CN (occurrence: CN)
  Receive Date: 20190927
  Receipt Date: 20190927
  Transmission Date: 20191005
  Serious: Yes (Hospitalization)
  Sender: FDA-Public Use
  Company Number: CN-PFIZER INC-2019418314

PATIENT
  Age: 65 Year
  Sex: Female

DRUGS (3)
  1. TRIPTERYGIUM SPP. TOTAL GLYCOSIDE EXTRACT [Concomitant]
     Active Substance: HERBALS
     Indication: ARTHRALGIA
     Dosage: 1 DF, 2X/DAY
     Dates: start: 20190802
  2. CELECOXIB. [Suspect]
     Active Substance: CELECOXIB
     Indication: ARTHRALGIA
     Dosage: 200 MG, 1X/DAY
     Route: 048
     Dates: start: 20190802, end: 201909
  3. DIOSMIN [Concomitant]
     Active Substance: DIOSMIN
     Indication: ARTHRALGIA
     Dosage: 1 DF, 2X/DAY
     Dates: start: 20190802

REACTIONS (8)
  - Vitreous opacities [Recovering/Resolving]
  - Optic ischaemic neuropathy [Recovering/Resolving]
  - Vomiting [Recovering/Resolving]
  - Decreased appetite [Unknown]
  - Vitreous floaters [Unknown]
  - Vision blurred [Recovering/Resolving]
  - Dizziness [Recovering/Resolving]
  - Nausea [Recovering/Resolving]

NARRATIVE: CASE EVENT DATE: 201908
